FAERS Safety Report 12551207 (Version 1)
Quarter: 2016Q3

REPORT INFORMATION
  Report Type: Spontaneous
  Country: US (occurrence: US)
  Receive Date: 20160713
  Receipt Date: 20160713
  Transmission Date: 20161109
  Serious: Yes (Other)
  Sender: FDA-Public Use
  Company Number: US-TAIHO ONCOLOGY INC-EU-2016-01563

PATIENT
  Sex: Female

DRUGS (6)
  1. LIPITOR [Concomitant]
     Active Substance: ATORVASTATIN CALCIUM
     Dosage: NI
  2. ZOFRAN [Concomitant]
     Active Substance: ONDANSETRON HYDROCHLORIDE
     Dosage: NI
  3. XARELTO [Concomitant]
     Active Substance: RIVAROXABAN
     Dosage: NI
  4. LONSURF [Suspect]
     Active Substance: TIPIRACIL HYDROCHLORIDE\TRIFLURIDINE
     Route: 048
     Dates: start: 20160120
  5. METOPROLOL. [Concomitant]
     Active Substance: METOPROLOL
     Dosage: NI
  6. LEVOTHYROXINE. [Concomitant]
     Active Substance: LEVOTHYROXINE
     Dosage: NI

REACTIONS (1)
  - Foot fracture [Unknown]

NARRATIVE: CASE EVENT DATE: 2016
